FAERS Safety Report 13281740 (Version 1)
Quarter: 2017Q1

REPORT INFORMATION
  Report Type: Spontaneous
  Country: US (occurrence: US)
  Receive Date: 20170301
  Receipt Date: 20170301
  Transmission Date: 20170428
  Serious: No
  Sender: FDA-Public Use
  Company Number: US-PFIZER INC-2017085343

PATIENT
  Age: 84 Year
  Sex: Female

DRUGS (2)
  1. SUTENT [Suspect]
     Active Substance: SUNITINIB MALATE
     Indication: RENAL CANCER STAGE IV
     Dosage: 50 MG, UNK (AS DIRECTED)
     Route: 048
     Dates: start: 20151215, end: 20161117
  2. SUTENT [Suspect]
     Active Substance: SUNITINIB MALATE
     Dosage: 50 MG, CYCLIC (50 MG DAILY FOUR WEEKS ON AND TWO WEEKS OFF )
     Dates: start: 20160104, end: 20160127

REACTIONS (1)
  - Liver function test increased [Unknown]
